FAERS Safety Report 10008913 (Version 1)
Quarter: 2014Q1

REPORT INFORMATION
  Report Type: Spontaneous
  Country: US (occurrence: US)
  Receive Date: 20140313
  Receipt Date: 20140313
  Transmission Date: 20141002
  Serious: No
  Sender: FDA-Public Use
  Company Number: US-INCYTE CORPORATION-2012IN000852

PATIENT
  Sex: Female

DRUGS (11)
  1. JAKAFI [Suspect]
     Indication: MYELOFIBROSIS
     Dosage: 15 MG, BID
     Dates: start: 201201
  2. ENDOCET [Concomitant]
  3. MORPHINE [Concomitant]
  4. OXYCODONE [Concomitant]
  5. MIDAZOLAM [Concomitant]
  6. ATENOLOL [Concomitant]
  7. HYDROXYZINE [Concomitant]
  8. OMEPRAZOLE [Concomitant]
  9. LEVOTHYROXINE [Concomitant]
  10. VERAPAMIL [Concomitant]
  11. LOVENOX [Concomitant]

REACTIONS (1)
  - Alopecia [Not Recovered/Not Resolved]
